FAERS Safety Report 15627968 (Version 2)
Quarter: 2018Q4

REPORT INFORMATION
  Report Type: Report from Study
  Country: None (occurrence: CH)
  Receive Date: 20181116
  Receipt Date: 20181129
  Transmission Date: 20190205
  Serious: Yes (Hospitalization)
  Sender: FDA-Public Use
  Company Number: CH-ABBVIE-18S-151-2551769-00

PATIENT
  Sex: Female

DRUGS (4)
  1. DUODOPA [Suspect]
     Active Substance: CARBIDOPA\LEVODOPA
     Dosage: MD 2ML, CRD 3.8ML/H, CRN 2.8ML/H, ED  2ML?24H THERAPY
     Route: 050
     Dates: start: 20180927, end: 20181101
  2. DUODOPA [Suspect]
     Active Substance: CARBIDOPA\LEVODOPA
     Dosage: MD 2ML, CRD 4.0ML/H, CRN 2.8ML/H, ED 2ML,?24H THERAPY
     Route: 050
     Dates: start: 20181107
  3. DUODOPA [Suspect]
     Active Substance: CARBIDOPA\LEVODOPA
     Dosage: MD 3ML, CRD 4ML/H,CRN 2.8ML/H, ED 2ML?24H THERAPY
     Route: 050
     Dates: start: 20171219, end: 20180927
  4. DUODOPA [Suspect]
     Active Substance: CARBIDOPA\LEVODOPA
     Indication: PARKINSON^S DISEASE
     Route: 050
     Dates: start: 20151117, end: 20171219

REACTIONS (3)
  - Device dislocation [Recovered/Resolved]
  - Device occlusion [Recovered/Resolved]
  - Akinesia [Unknown]
